FAERS Safety Report 21111768 (Version 1)
Quarter: 2022Q3

REPORT INFORMATION
  Report Type: Spontaneous
  Country: IT (occurrence: None)
  Receive Date: 20220721
  Receipt Date: 20220721
  Transmission Date: 20221026
  Serious: Yes (Life-Threatening, Hospitalization, Other)
  Sender: FDA-Public Use
  Company Number: IT-HQ-20220006

PATIENT
  Age: 70 Year
  Sex: Female

DRUGS (2)
  1. LINEZOLID [Suspect]
     Active Substance: LINEZOLID
     Indication: Postoperative wound infection
     Dosage: LINEZOLID 600 MG EVERY 12 H, 30-MIN INFUSION
     Dates: start: 202005, end: 20200627
  2. TIGECYCLINE [Concomitant]
     Active Substance: TIGECYCLINE
     Indication: Postoperative wound infection
     Dates: start: 20200525

REACTIONS (5)
  - Thrombocytopenia [Recovered/Resolved]
  - Lactic acidosis [Recovered/Resolved]
  - Hypocapnia [Recovered/Resolved]
  - Hypoglycaemia [Recovered/Resolved]
  - International normalised ratio increased [Recovered/Resolved]

NARRATIVE: CASE EVENT DATE: 20200601
